FAERS Safety Report 12147362 (Version 1)
Quarter: 2016Q1

REPORT INFORMATION
  Report Type: Spontaneous
  Country: CA (occurrence: CA)
  Receive Date: 20160304
  Receipt Date: 20160304
  Transmission Date: 20160526
  Serious: Yes (Hospitalization, Other)
  Sender: FDA-Public Use
  Company Number: CA-AMGEN-CANSP2016024295

PATIENT
  Age: 75 Year
  Sex: Female

DRUGS (1)
  1. PROLIA [Suspect]
     Active Substance: DENOSUMAB
     Indication: PRODUCT USED FOR UNKNOWN INDICATION
     Dosage: UNK,
     Route: 065
     Dates: start: 201409

REACTIONS (14)
  - Hospitalisation [Unknown]
  - Anaemia [Unknown]
  - Malaise [Unknown]
  - Nasal discomfort [Unknown]
  - Myalgia [Unknown]
  - Musculoskeletal disorder [Unknown]
  - Oropharyngeal pain [Unknown]
  - Crying [Unknown]
  - Thrombosis [Unknown]
  - Epistaxis [Unknown]
  - Pain in extremity [Unknown]
  - Oropharyngeal discomfort [Unknown]
  - Ear operation [Unknown]
  - Rhinorrhoea [Unknown]
